FAERS Safety Report 16655388 (Version 1)
Quarter: 2019Q3

REPORT INFORMATION
  Report Type: Spontaneous
  Country: GB (occurrence: GB)
  Receive Date: 20190801
  Receipt Date: 20190801
  Transmission Date: 20191004
  Serious: Yes (Other)
  Sender: FDA-Public Use
  Company Number: GB-EMD SERONO-9107369

PATIENT
  Sex: Female

DRUGS (2)
  1. CLOMID [Suspect]
     Active Substance: CLOMIPHENE CITRATE
     Indication: ASSISTED REPRODUCTIVE TECHNOLOGY
     Dosage: PILL (5-9 DAYS)
  2. OVITRELLE [Suspect]
     Active Substance: CHORIOGONADOTROPIN ALFA
     Indication: OVULATION INDUCTION

REACTIONS (1)
  - Abortion spontaneous [Recovered/Resolved]
